FAERS Safety Report 8816876 (Version 1)
Quarter: 2012Q4

REPORT INFORMATION
  Report Type: Spontaneous
  Country: US (occurrence: None)
  Receive Date: 20121002
  Receipt Date: 20121002
  Transmission Date: 20130627
  Serious: Yes (Hospitalization, Other)
  Sender: FDA-Public Use
  Company Number: VAL_00867_2012

PATIENT
  Age: 56 Year
  Sex: Male

DRUGS (18)
  1. LOPRESSOR [Suspect]
     Indication: PRODUCT USED FOR UNKNOWN INDICATION
     Dates: end: 20110609
  2. TEGRETOL [Suspect]
     Indication: PRODUCT USED FOR UNKNOWN INDICATION
     Route: 061
  3. LYRICA [Suspect]
     Indication: PRODUCT USED FOR UNKNOWN INDICATION
  4. AMLODIPINE [Suspect]
     Indication: PRODUCT USED FOR UNKNOWN INDICATION
     Dates: start: 20110611
  5. SAXAGLIPTIN [Suspect]
     Indication: TYPE 2 DIABETES MELLITUS
     Dates: start: 20101208
  6. METFORMIN HYDROCHLORIDE [Suspect]
     Indication: TYPE 2 DIABETES MELLITUS
  7. HUMALOG [Suspect]
     Indication: TYPE 2 DIABETES MELLITUS
  8. LANTUS [Suspect]
     Indication: TYPE 2 DIABETES MELLITUS
  9. LANTUS [Suspect]
     Indication: TYPE 2 DIABETES MELLITUS
  10. ASPIRIN [Concomitant]
  11. ORGANIC NITRATES [Concomitant]
  12. DIURETICS [Concomitant]
  13. BETA BLOCKING AGENTS [Concomitant]
  14. ACE INHIBITORS [Concomitant]
  15. ALPHA BLOCKERS [Concomitant]
  16. FIBRIC ACID [Concomitant]
  17. CALCIUM ANTAGONIST [Concomitant]
  18. ANGIOTENSIN CONVERTING ENZYME INHIBITORS [Concomitant]

REACTIONS (7)
  - Syncope [None]
  - Orthostatic hypotension [None]
  - Drug interaction [None]
  - Angina unstable [None]
  - Palpitations [None]
  - Myocardial ischaemia [None]
  - Coronary artery stenosis [None]
